FAERS Safety Report 13382673 (Version 6)
Quarter: 2017Q3

REPORT INFORMATION
  Report Type: Spontaneous
  Country: US (occurrence: US)
  Receive Date: 20170329
  Receipt Date: 20170907
  Transmission Date: 20171127
  Serious: No
  Sender: FDA-Public Use
  Company Number: PHEH2017US008766

PATIENT
  Sex: Male

DRUGS (2)
  1. LENVIMA [Suspect]
     Active Substance: LENVATINIB
     Indication: RENAL CANCER
     Dosage: 14 MG, QD
     Route: 048
     Dates: start: 20170303
  2. AFINITOR [Suspect]
     Active Substance: EVEROLIMUS
     Indication: RENAL CELL CARCINOMA
     Route: 065

REACTIONS (9)
  - Pruritus [Unknown]
  - Renal neoplasm [Unknown]
  - Memory impairment [Not Recovered/Not Resolved]
  - Constipation [Unknown]
  - Balance disorder [Unknown]
  - Stomatitis [Unknown]
  - Anxiety [Unknown]
  - Thyroid function test abnormal [Unknown]
  - Dizziness [Unknown]
